FAERS Safety Report 12985845 (Version 1)
Quarter: 2016Q4

REPORT INFORMATION
  Report Type: Report from Study
  Country: US (occurrence: US)
  Receive Date: 20161130
  Receipt Date: 20161130
  Transmission Date: 20170207
  Serious: No
  Sender: FDA-Public Use
  Company Number: US-009507513-1611USA008266

PATIENT
  Age: 26 Year

DRUGS (1)
  1. IMPLANON [Suspect]
     Active Substance: ETONOGESTREL
     Dosage: UNK
     Route: 059
     Dates: start: 20160421, end: 20161116

REACTIONS (2)
  - Menstruation irregular [Unknown]
  - Medical device removal [Unknown]

NARRATIVE: CASE EVENT DATE: 2016
